FAERS Safety Report 6429549-7 (Version None)
Quarter: 2009Q4

REPORT INFORMATION
  Report Type: 
  Country: None (occurrence: None)
  Receive Date: 20091103
  Receipt Date: 20091026
  Transmission Date: 20100525
  Serious: Yes (Other)
  Sender: FDA-Public Use
  Company Number: CIP09002671

PATIENT
  Age: 67 Year
  Sex: Female
  Weight: 108.8 kg

DRUGS (7)
  1. ACTONEL [Suspect]
     Indication: OSTEOPOROSIS
     Dosage: 35 MG ONCE WEEKLY, ORAL
     Route: 048
     Dates: end: 20090101
  2. DIOVAN [Concomitant]
  3. TRIAMTERENE AND HYDROCHLOROTHIAZIDE (HYDROCHLOROTHIAZIDE, TRIAMTERENE) [Concomitant]
  4. SIMVASTATIN [Concomitant]
  5. PILOCARPINE [Concomitant]
  6. ASPIRIN [Concomitant]
  7. TUMS /00108001/ (CALCIUM CARBONATE) [Concomitant]

REACTIONS (5)
  - CATARACT [None]
  - HYPERPARATHYROIDISM [None]
  - HYPERVITAMINOSIS D [None]
  - KERATOPATHY [None]
  - RENAL DISORDER [None]
